FAERS Safety Report 14261725 (Version 4)
Quarter: 2018Q1

REPORT INFORMATION
  Report Type: Spontaneous
  Country: BR (occurrence: BR)
  Receive Date: 20171208
  Receipt Date: 20180130
  Transmission Date: 20180508
  Serious: Yes (Death, Hospitalization, Other)
  Sender: FDA-Public Use
  Company Number: BR-AMGEN-BRACT2011038929

PATIENT
  Age: 62 Year
  Sex: Male
  Weight: 74 kg

DRUGS (4)
  1. ENBREL [Suspect]
     Active Substance: ETANERCEPT
     Indication: ANKYLOSING SPONDYLITIS
     Dosage: UNK
     Route: 058
     Dates: start: 20100103
  2. ENBREL [Suspect]
     Active Substance: ETANERCEPT
     Indication: RHEUMATIC DISORDER
  3. ATENOLOL. [Concomitant]
     Active Substance: ATENOLOL
     Dosage: UNK
     Route: 065
  4. METICORTEN [Concomitant]
     Active Substance: PREDNISONE
     Dosage: UNK
     Route: 065

REACTIONS (8)
  - Renal impairment [Not Recovered/Not Resolved]
  - Spinal disorder [Not Recovered/Not Resolved]
  - Renal failure [Fatal]
  - Dyspnoea [Not Recovered/Not Resolved]
  - Respiratory failure [Fatal]
  - Liver function test abnormal [Unknown]
  - Multi-organ disorder [Not Recovered/Not Resolved]
  - Feeling abnormal [Not Recovered/Not Resolved]

NARRATIVE: CASE EVENT DATE: 2014
